FAERS Safety Report 23073648 (Version 1)
Quarter: 2023Q4

REPORT INFORMATION
  Report Type: Spontaneous
  Country: US (occurrence: US)
  Receive Date: 20231017
  Receipt Date: 20231017
  Transmission Date: 20240110
  Serious: Yes (Death, Other)
  Sender: FDA-Public Use
  Company Number: US-ASTELLAS-2023US026853

PATIENT
  Age: 76 Year
  Sex: Female

DRUGS (1)
  1. PADCEV [Suspect]
     Active Substance: ENFORTUMAB VEDOTIN-EJFV
     Indication: Product used for unknown indication
     Dosage: 1.25 MG/KG, OTHER (ONCE)
     Route: 065
     Dates: end: 2023

REACTIONS (3)
  - Death [Fatal]
  - Psoriasis [Unknown]
  - Rash pruritic [Unknown]
